FAERS Safety Report 15409570 (Version 1)
Quarter: 2018Q3

REPORT INFORMATION
  Report Type: Report from Study
  Country: CA (occurrence: CA)
  Receive Date: 20180920
  Receipt Date: 20180920
  Transmission Date: 20181010
  Serious: Yes (Hospitalization)
  Sender: FDA-Public Use
  Company Number: CA-ACTELION-A-NJ2018-176498

PATIENT
  Age: 72 Year
  Sex: Female
  Weight: 81.63 kg

DRUGS (10)
  1. METOPROLOL. [Concomitant]
     Active Substance: METOPROLOL
  2. LASIX [Concomitant]
     Active Substance: FUROSEMIDE
  3. ACETYLSALICYLIC ACID [Concomitant]
     Active Substance: ASPIRIN
  4. ADCIRCA [Concomitant]
     Active Substance: TADALAFIL
  5. UPTRAVI [Suspect]
     Active Substance: SELEXIPAG
     Indication: PULMONARY ARTERIAL HYPERTENSION
     Dosage: UNK
     Route: 048
     Dates: start: 20180702
  6. LIPITOR [Concomitant]
     Active Substance: ATORVASTATIN CALCIUM
  7. UPTRAVI [Suspect]
     Active Substance: SELEXIPAG
     Dosage: 800 MCG, BID
     Route: 048
  8. TICAGRELOR. [Concomitant]
     Active Substance: TICAGRELOR
  9. FELODIPINE. [Concomitant]
     Active Substance: FELODIPINE
  10. VOLIBRIS [Concomitant]
     Active Substance: AMBRISENTAN

REACTIONS (3)
  - Hospitalisation [Unknown]
  - Headache [Unknown]
  - Nausea [Unknown]
